FAERS Safety Report 18622127 (Version 1)
Quarter: 2020Q4

REPORT INFORMATION
  Report Type: Spontaneous
  Country: FR (occurrence: FR)
  Receive Date: 20201216
  Receipt Date: 20201216
  Transmission Date: 20210114
  Serious: Yes (Other)
  Sender: FDA-Public Use
  Company Number: FR-ACCORD-211066

PATIENT
  Age: 24 Year
  Sex: Male
  Weight: 69 kg

DRUGS (3)
  1. CISPLATIN. [Suspect]
     Active Substance: CISPLATIN
     Indication: OSTEOSARCOMA
     Route: 041
     Dates: start: 20200916, end: 20201028
  2. HOLOXAN [Suspect]
     Active Substance: IFOSFAMIDE
     Indication: OSTEOSARCOMA
     Dosage: SOIT 5000 MG AU C1J1, C1J2, C1J21, C1J22, C2J1, C2J2
     Route: 041
     Dates: start: 20200916, end: 20201028
  3. DOXORUBICIN [Suspect]
     Active Substance: DOXORUBICIN
     Indication: OSTEOSARCOMA
     Route: 041
     Dates: start: 20200916, end: 20201028

REACTIONS (7)
  - Colitis [Recovering/Resolving]
  - Ejection fraction decreased [Not Recovered/Not Resolved]
  - Vomiting [Recovered/Resolved]
  - Off label use [Unknown]
  - Asthenia [Recovered/Resolved]
  - Neutropenia [Recovered/Resolved]
  - Nausea [Recovered/Resolved]

NARRATIVE: CASE EVENT DATE: 20200921
